FAERS Safety Report 16969603 (Version 1)
Quarter: 2019Q4

REPORT INFORMATION
  Report Type: Spontaneous
  Country: US (occurrence: US)
  Receive Date: 20190911
  Receipt Date: 20190911
  Transmission Date: 20200122
  Serious: No
  Sender: FDA-Public Use
  Company Number: None

PATIENT
  Sex: Female

DRUGS (12)
  1. ATIVAN [Concomitant]
     Active Substance: LORAZEPAM
  2. DURAGESIC [Concomitant]
     Active Substance: FENTANYL
  3. MELATONIN [Concomitant]
     Active Substance: MELATONIN
  4. TRILAMINE [Concomitant]
  5. VITAMIN D [Concomitant]
     Active Substance: VITAMIN D NOS
  6. GABAPENTIN. [Concomitant]
     Active Substance: GABAPENTIN
  7. TYLENOL PM [Concomitant]
     Active Substance: ACETAMINOPHEN\DIPHENHYDRAMINE
  8. TYLENOL/COD [Concomitant]
  9. ZOFRAN [Concomitant]
     Active Substance: ONDANSETRON HYDROCHLORIDE
  10. CAPECITABINE 500MG TABLET [Suspect]
     Active Substance: CAPECITABINE
     Indication: BREAST CANCER FEMALE
     Route: 048
     Dates: start: 20190116
  11. MELOXICAM. [Concomitant]
     Active Substance: MELOXICAM
  12. TYLENOL SINUS [Concomitant]
     Active Substance: ACETAMINOPHEN\DIPHENHYDRAMINE

REACTIONS (2)
  - Pain [None]
  - Therapy cessation [None]
